FAERS Safety Report 14605541 (Version 1)
Quarter: 2018Q1

REPORT INFORMATION
  Report Type: Spontaneous
  Country: US (occurrence: US)
  Receive Date: 20180306
  Receipt Date: 20180306
  Transmission Date: 20180509
  Serious: No
  Sender: FDA-Public Use
  Company Number: US-INTERCEPT-PMOCA2018000003

PATIENT

DRUGS (1)
  1. OCALIVA [Suspect]
     Active Substance: OBETICHOLIC ACID
     Indication: PRIMARY BILIARY CHOLANGITIS
     Dosage: 5 MG, QD
     Route: 048
     Dates: start: 20171228

REACTIONS (8)
  - Abdominal pain [Unknown]
  - Arthralgia [Unknown]
  - Pruritus [Unknown]
  - Insomnia [Unknown]
  - Abdominal pain upper [Unknown]
  - Musculoskeletal discomfort [Unknown]
  - Back pain [Unknown]
  - Dizziness [Unknown]
